FAERS Safety Report 8431572-8 (Version None)
Quarter: 2012Q2

REPORT INFORMATION
  Report Type: 
  Country: None (occurrence: None)
  Receive Date: 20120607
  Receipt Date: 20120607
  Transmission Date: 20120825
  Serious: Yes (Other)
  Sender: FDA-Public Use
  Company Number: None

PATIENT
  Sex: Female
  Weight: 93.2 kg

DRUGS (1)
  1. VALPROATE SODIUM [Suspect]
     Indication: CONVULSION
     Dosage: 2 CAPSULES TWICE A DAY 047

REACTIONS (12)
  - DIZZINESS [None]
  - MEMORY IMPAIRMENT [None]
  - DIPLOPIA [None]
  - RENAL PAIN [None]
  - DYSPEPSIA [None]
  - BALANCE DISORDER [None]
  - DYSSTASIA [None]
  - VISION BLURRED [None]
  - TREMOR [None]
  - ABDOMINAL PAIN UPPER [None]
  - COORDINATION ABNORMAL [None]
  - DYSGRAPHIA [None]
